FAERS Safety Report 17122314 (Version 1)
Quarter: 2019Q4

REPORT INFORMATION
  Report Type: Spontaneous
  Country: PL (occurrence: PL)
  Receive Date: 20191206
  Receipt Date: 20191206
  Transmission Date: 20200122
  Serious: Yes (Hospitalization)
  Sender: FDA-Public Use
  Company Number: PL-PFIZER INC-2019521450

PATIENT
  Age: 38 Year
  Sex: Male
  Weight: 86 kg

DRUGS (2)
  1. DALACIN C [Suspect]
     Active Substance: CLINDAMYCIN PHOSPHATE
     Indication: PULPITIS DENTAL
     Dosage: 300 MG, UNK
     Route: 048
     Dates: start: 20160701, end: 20160703
  2. KETONAL [KETOPROFEN] [Suspect]
     Active Substance: KETOPROFEN
     Indication: PULPITIS DENTAL
     Dosage: UNK
     Route: 048
     Dates: end: 20160703

REACTIONS (2)
  - Erythema [Recovering/Resolving]
  - Drug eruption [Recovering/Resolving]

NARRATIVE: CASE EVENT DATE: 20160703
